FAERS Safety Report 13401303 (Version 1)
Quarter: 2017Q2

REPORT INFORMATION
  Report Type: Spontaneous
  Country: US (occurrence: US)
  Receive Date: 20170404
  Receipt Date: 20170404
  Transmission Date: 20170830
  Serious: No
  Sender: FDA-Public Use
  Company Number: US-ALLERGAN-1708440US

PATIENT
  Sex: Female

DRUGS (1)
  1. VRAYLAR [Suspect]
     Active Substance: CARIPRAZINE
     Indication: BIPOLAR I DISORDER
     Dosage: 1.5 MG, QD
     Route: 048

REACTIONS (6)
  - Restlessness [Unknown]
  - Substance-induced mood disorder [Unknown]
  - Off label use [Unknown]
  - Weight increased [Unknown]
  - Abdominal distension [Unknown]
  - Fluid retention [Unknown]
